FAERS Safety Report 4956330-8 (Version None)
Quarter: 2006Q1

REPORT INFORMATION
  Report Type: 
  Country: None (occurrence: None)
  Receive Date: 20060323
  Receipt Date: 20050310
  Transmission Date: 20060701
  Serious: Yes (Hospitalization)
  Sender: FDA-Public Use
  Company Number: 2006037087

PATIENT
  Age: 26 Year
  Sex: Male

DRUGS (2)
  1. VIRACEPT [Suspect]
     Indication: HIV TEST POSITIVE
     Dosage: 10 DOSES (2 IN 1 D), ORAL
     Route: 048
     Dates: start: 20040607, end: 20040608
  2. COMBIVIR [Suspect]
     Indication: HIV TEST POSITIVE
     Dosage: 2 DOSES (2 IN 1 D), ORAL
     Route: 048
     Dates: start: 20040607, end: 20040608

REACTIONS (4)
  - ABDOMINAL PAIN UPPER [None]
  - DIARRHOEA [None]
  - VERTIGO [None]
  - VOMITING [None]
